FAERS Safety Report 9168962 (Version 1)
Quarter: 2013Q1

REPORT INFORMATION
  Report Type: Spontaneous
  Country: US (occurrence: None)
  Receive Date: 20130307
  Receipt Date: 20130307
  Transmission Date: 20140127
  Serious: Yes (Other)
  Sender: FDA-Public Use
  Company Number: CRC-13-158

PATIENT
  Sex: Female

DRUGS (1)
  1. ALENDRONATE SODIUM TABLETS, USP, 70 MG MFR/LABEL SUN PH [Suspect]
     Indication: OSTEOPOROSIS
     Route: 048
     Dates: start: 201212

REACTIONS (1)
  - Photopsia [None]
